FAERS Safety Report 26077945 (Version 1)
Quarter: 2025Q4

REPORT INFORMATION
  Report Type: Spontaneous
  Country: US (occurrence: US)
  Receive Date: 20251122
  Receipt Date: 20251122
  Transmission Date: 20260117
  Serious: No
  Sender: MDD OPERATIONS
  Company Number: US-MDD US Operations-MDD202508-003259

PATIENT
  Age: 68 Year
  Sex: Male

DRUGS (4)
  1. ONAPGO [Suspect]
     Active Substance: APOMORPHINE HYDROCHLORIDE
     Indication: Parkinson^s disease
     Dates: start: 20250821
  2. ONAPGO [Suspect]
     Active Substance: APOMORPHINE HYDROCHLORIDE
     Indication: Dyskinesia
     Dosage: FOR 16 HOURS OR LESS EACH DAY. CONTINUOUS DOSE (MAX 6MG/HR OR 98MG/DAY) AND EXTRA DOSES (MAX 3 PER D
     Route: 058
     Dates: start: 202507
  3. ONAPGO [Suspect]
     Active Substance: APOMORPHINE HYDROCHLORIDE
     Indication: On and off phenomenon
  4. ZOFRAN [Concomitant]
     Active Substance: ONDANSETRON HYDROCHLORIDE
     Dosage: NOT PROVIDED

REACTIONS (7)
  - Hyperhidrosis [Recovered/Resolved]
  - Nausea [Not Recovered/Not Resolved]
  - Nausea [Recovered/Resolved]
  - Dizziness [Recovered/Resolved]
  - Injection site reaction [Recovered/Resolved]
  - Contraindicated product administered [Unknown]
  - Device use issue [Unknown]

NARRATIVE: CASE EVENT DATE: 20250821
